FAERS Safety Report 18775805 (Version 8)
Quarter: 2021Q4

REPORT INFORMATION
  Report Type: Report from Study
  Country: KR (occurrence: KR)
  Receive Date: 20210122
  Receipt Date: 20211116
  Transmission Date: 20220303
  Serious: Yes (Hospitalization)
  Sender: FDA-Public Use
  Company Number: KR-TAKEDA-2021TUS003665

PATIENT
  Age: 75 Year
  Sex: Male
  Weight: 43 kg

DRUGS (18)
  1. BRIGATINIB [Suspect]
     Active Substance: BRIGATINIB
     Indication: Non-small cell lung cancer
     Dosage: 90 MILLIGRAM, QD
     Route: 048
     Dates: start: 20201215, end: 20201221
  2. BRIGATINIB [Suspect]
     Active Substance: BRIGATINIB
     Dosage: 180 MILLIGRAM, QD
     Route: 048
     Dates: start: 20210106
  3. TAPOCIN [Concomitant]
     Indication: Pneumonia
     Dosage: 400 MILLIGRAM, QD
     Route: 042
     Dates: start: 20201211, end: 20201215
  4. METRONIDAZOLE [Concomitant]
     Active Substance: METRONIDAZOLE
     Indication: Pneumonia
     Dosage: 1500 MILLIGRAM, TID
     Route: 042
     Dates: start: 20201210, end: 20201215
  5. POSPENEM [Concomitant]
     Indication: Pneumonia
     Dosage: 3 GRAM, TID
     Route: 042
     Dates: start: 20201210, end: 20201215
  6. AVELOX [Concomitant]
     Active Substance: MOXIFLOXACIN HYDROCHLORIDE
     Indication: Pneumonia
     Dosage: 400 MILLIGRAM, QD
     Route: 042
     Dates: start: 20201210, end: 20201215
  7. MEGESTROL ACETATE [Concomitant]
     Active Substance: MEGESTROL ACETATE
     Indication: Decreased appetite
     Dosage: 650 MILLIGRAM, QD
     Route: 048
     Dates: start: 20201127, end: 20210117
  8. LEVOMELS [Concomitant]
     Indication: Aspartate aminotransferase increased
     Dosage: 1000 MILLIGRAM, QD
     Route: 042
     Dates: start: 20201209, end: 20201215
  9. GODEX [ADENINE HYDROCHLORIDE;BIFENDATE;CARNITINE OROTATE;CYANOCOBALAMI [Concomitant]
     Indication: Prophylaxis
     Dosage: UNK UNK, BID
     Route: 048
     Dates: start: 20200609
  10. LANSOPRAZOLE [Concomitant]
     Active Substance: LANSOPRAZOLE
     Indication: Prophylaxis
     Dosage: 15 MILLIGRAM, QD
     Route: 048
     Dates: start: 20200512
  11. ZOLPIDEM TARTRATE [Concomitant]
     Active Substance: ZOLPIDEM TARTRATE
     Indication: Insomnia
     Dosage: 6.25 MILLIGRAM, QD
     Route: 048
     Dates: start: 20020519
  12. REBAMIPIDE [Concomitant]
     Active Substance: REBAMIPIDE
     Indication: Prophylaxis
     Dosage: 200 MILLIGRAM, BID
     Route: 048
     Dates: start: 20200512
  13. SUPRAX [Concomitant]
     Active Substance: CEFIXIME
     Indication: Prophylaxis
     Dosage: 200 MILLIGRAM, BID
     Route: 048
     Dates: start: 20201215, end: 20201221
  14. LACTULOSE [Concomitant]
     Active Substance: LACTULOSE
     Indication: Constipation
     Dosage: 30 MILLILITER, BID
     Route: 048
     Dates: start: 20200729
  15. TRAMAROL [Concomitant]
     Indication: Pyrexia
     Dosage: UNK UNK, TID
     Route: 048
     Dates: start: 20201215
  16. DISGREN [TRIFLUSAL] [Concomitant]
     Indication: Prophylaxis
     Dosage: 300 MILLIGRAM, QD
     Route: 048
     Dates: start: 20200716
  17. FOLIC ACID [Concomitant]
     Active Substance: FOLIC ACID
     Indication: Anaemia
     Dosage: 1 MILLIGRAM, QD
     Route: 048
     Dates: start: 20200714
  18. REXIPIN [Concomitant]
     Indication: Cough
     Dosage: 800 MILLIGRAM, BID
     Route: 048
     Dates: start: 20200512

REACTIONS (3)
  - Superior vena cava syndrome [Not Recovered/Not Resolved]
  - Pruritus [Recovered/Resolved]
  - Pyrexia [Recovered/Resolved]

NARRATIVE: CASE EVENT DATE: 20210101
